FAERS Safety Report 7132635-X (Version None)
Quarter: 2010Q4

REPORT INFORMATION
  Report Type: 
  Country: None (occurrence: None)
  Receive Date: 20101130
  Receipt Date: 20101130
  Transmission Date: 20110411
  Serious: No
  Sender: FDA-Public Use
  Company Number: None

PATIENT

DRUGS (1)
  1. ADVIL [Suspect]
     Indication: PAIN
     Dosage: 2-3 CAPSULES AS NEEDED PO
     Route: 048
     Dates: start: 20100401, end: 20100601

REACTIONS (4)
  - FOREIGN BODY [None]
  - OROPHARYNGEAL PAIN [None]
  - THROAT IRRITATION [None]
  - VOMITING [None]
